FAERS Safety Report 9455302 (Version 3)
Quarter: 2014Q1

REPORT INFORMATION
  Report Type: Report from Study
  Country: FR (occurrence: FR)
  Receive Date: 20130813
  Receipt Date: 20140202
  Transmission Date: 20141002
  Serious: Yes (Hospitalization)
  Sender: FDA-Public Use
  Company Number: FR-ROCHE-1178029

PATIENT
  Age: 67 Year
  Sex: Female
  Weight: 57 kg

DRUGS (11)
  1. TRASTUZUMAB [Suspect]
     Indication: BREAST CANCER
     Dosage: LOADING DOSE
     Route: 042
     Dates: start: 20120618
  2. TRASTUZUMAB [Suspect]
     Dosage: MAINTAINENCE DOSE?J1-J21,LAST DOSE PRIOR TO SAE ON 24/DEC/2012
     Route: 042
     Dates: start: 20120708, end: 20130110
  3. PERTUZUMAB [Suspect]
     Indication: BREAST CANCER
     Dosage: LOADING DOSE
     Route: 042
     Dates: start: 20120618
  4. PERTUZUMAB [Suspect]
     Dosage: MAINTAINENCE DOSE?J1-J21. LAST DOSE PRIOR TO SAE: 24/DEC/2012
     Route: 042
     Dates: start: 20120708, end: 20130114
  5. VINORELBINE [Suspect]
     Indication: BREAST CANCER
     Dosage: J1-J8, LAST DOSE PRIOR TO SAE ON 31/DEC/2012
     Route: 042
     Dates: start: 20120618, end: 20130114
  6. SKENAN [Concomitant]
     Route: 065
     Dates: start: 2012
  7. PROZAC [Concomitant]
     Route: 065
     Dates: start: 2012
  8. DOGMATIL [Concomitant]
     Route: 065
     Dates: start: 2011
  9. STILNOX [Concomitant]
     Route: 065
     Dates: start: 2012
  10. ACTISKENAN [Concomitant]
     Route: 065
     Dates: start: 2012
  11. THERALENE (FRANCE) [Concomitant]
     Route: 065
     Dates: start: 2012

REACTIONS (1)
  - Left ventricular dysfunction [Not Recovered/Not Resolved]
